FAERS Safety Report 7728266-0 (Version None)
Quarter: 2011Q3

REPORT INFORMATION
  Report Type: 
  Country: None (occurrence: None)
  Receive Date: 20110905
  Receipt Date: 20110826
  Transmission Date: 20111222
  Serious: Yes (Other)
  Sender: FDA-Public Use
  Company Number: PHHY2011US44082

PATIENT
  Sex: Female

DRUGS (1)
  1. RECLAST [Suspect]
     Dosage: 5 MG,
     Route: 042
     Dates: start: 20100527

REACTIONS (5)
  - TOOTH ABSCESS [None]
  - JAW DISORDER [None]
  - THROAT CANCER [None]
  - TOOTH DISORDER [None]
  - NEPHROLITHIASIS [None]
